FAERS Safety Report 8231996-8 (Version None)
Quarter: 2012Q1

REPORT INFORMATION
  Report Type: 
  Country: None (occurrence: None)
  Receive Date: 20120323
  Receipt Date: 20120309
  Transmission Date: 20120608
  Serious: Yes (Hospitalization, Disabling)
  Sender: FDA-Public Use
  Company Number: DE-TEVA-327346GER

PATIENT
  Age: 57 Year
  Sex: Female
  Weight: 76 kg

DRUGS (1)
  1. PROPOFOL [Suspect]
     Indication: OESOPHAGOGASTRODUODENOSCOPY

REACTIONS (2)
  - PANCREATITIS [None]
  - HEPATITIS [None]
